FAERS Safety Report 11050656 (Version 2)
Quarter: 2015Q2

REPORT INFORMATION
  Report Type: Spontaneous
  Country: SE (occurrence: SE)
  Receive Date: 20150421
  Receipt Date: 20150501
  Transmission Date: 20150821
  Serious: Yes (Other)
  Sender: FDA-Public Use
  Company Number: SE-SUN PHARMACEUTICAL INDUSTRIES LTD-2015R1-95329

PATIENT
  Age: 59 Year
  Sex: Female

DRUGS (1)
  1. LANSOPRAZOL RANBAXY 15 MG, MUNS?NDERFALLANDE TABLETT [Suspect]
     Active Substance: LANSOPRAZOLE
     Indication: GASTRITIS
     Dosage: UNK
     Route: 065
     Dates: start: 20150311, end: 20150311

REACTIONS (2)
  - Anaphylactic shock [Recovered/Resolved]
  - Product substitution issue [Recovered/Resolved]

NARRATIVE: CASE EVENT DATE: 20150315
